FAERS Safety Report 5208728-0 (Version None)
Quarter: 2007Q1

REPORT INFORMATION
  Report Type: 
  Country: None (occurrence: None)
  Receive Date: 20070116
  Receipt Date: 20070111
  Transmission Date: 20070707
  Serious: Yes (Hospitalization)
  Sender: FDA-Public Use
  Company Number: PHEH2006US11711

PATIENT
  Age: 66 Year
  Sex: Male

DRUGS (6)
  1. METOPROLOL SUCCINATE [Concomitant]
     Dosage: UNK, UNK
  2. ASPIRIN [Concomitant]
     Dosage: UNK, UNK
  3. LIPITOR [Concomitant]
     Dosage: UNK, UNK
  4. SPIROLONE [Concomitant]
     Dosage: UNK, UNK
  5. DIGOXIN [Concomitant]
     Dosage: UNK, UNK
  6. DIOVAN [Suspect]
     Indication: HYPERTENSION
     Dosage: 40 MG, BID
     Route: 048
     Dates: start: 20060821

REACTIONS (5)
  - CEREBROVASCULAR ACCIDENT [None]
  - DYSARTHRIA [None]
  - ECHOCARDIOGRAM ABNORMAL [None]
  - INTRACARDIAC THROMBUS [None]
  - NUCLEAR MAGNETIC RESONANCE IMAGING ABNORMAL [None]
